FAERS Safety Report 5334913-3 (Version None)
Quarter: 2007Q2

REPORT INFORMATION
  Report Type: 
  Country: None (occurrence: None)
  Receive Date: 20070525
  Receipt Date: 20070514
  Transmission Date: 20071010
  Serious: Yes (Other)
  Sender: FDA-Public Use
  Company Number: US-ROCHE-498823

PATIENT
  Age: 76 Year
  Sex: Female
  Weight: 68 kg

DRUGS (2)
  1. BONIVA [Suspect]
     Indication: OSTEOPOROSIS
     Route: 048
  2. MULTIPLE UNSPECIFIED MEDICATIONS [Concomitant]

REACTIONS (2)
  - GASTROOESOPHAGEAL CANCER [None]
  - PANCREATIC CARCINOMA [None]
